FAERS Safety Report 5024091-2 (Version None)
Quarter: 2006Q2

REPORT INFORMATION
  Report Type: 
  Country: None (occurrence: None)
  Receive Date: 20060607
  Receipt Date: 20060220
  Transmission Date: 20061013
  Serious: Yes (Other)
  Sender: FDA-Public Use
  Company Number: 2006025735

PATIENT
  Age: 65 Year
  Sex: Male
  Weight: 70.3075 kg

DRUGS (8)
  1. VIAGRA [Suspect]
     Indication: ERECTILE DYSFUNCTION
     Dosage: 100 MG (50 MG )
  2. DRUGS USED IN ERECTILE DYSFUNCTION ( OTHER UROLOGICALS, INCL ANTISPASM [Suspect]
     Indication: ERECTILE DYSFUNCTION
     Dosage: INTRACAVERNOSA
     Route: 017
  3. CIALIS [Suspect]
     Indication: ERECTILE DYSFUNCTION
  4. DRUGS USED IN ERECTILE DYSFUNCTION (OTHER UROLOGICALS, INCL ANTISPASMO [Suspect]
     Indication: ERECTILE DYSFUNCTION
  5. ATENOLOL [Concomitant]
  6. LORAZEPAM [Concomitant]
  7. VALSARTAN [Concomitant]
  8. HERBAL PREPARATION (HERBAL PREPARATION) [Concomitant]

REACTIONS (6)
  - BLOOD CHOLESTEROL INCREASED [None]
  - DRUG INEFFECTIVE [None]
  - HEPATIC NEOPLASM MALIGNANT [None]
  - MYOCARDIAL INFARCTION [None]
  - PROSTATE EXAMINATION ABNORMAL [None]
  - PROSTATIC DISORDER [None]
